FAERS Safety Report 4847598-7 (Version None)
Quarter: 2005Q4

REPORT INFORMATION
  Report Type: 
  Country: None (occurrence: None)
  Receive Date: 20051205
  Receipt Date: 20051124
  Transmission Date: 20060501
  Serious: Yes (Hospitalization)
  Sender: FDA-Public Use
  Company Number: 2005160508

PATIENT
  Age: 34 Year
  Sex: Female
  Weight: 113 kg

DRUGS (2)
  1. XANAX [Suspect]
     Indication: ANXIETY
     Dosage: 1.5 MG (0.5 MG), ORAL
     Route: 048
     Dates: start: 20051021, end: 20051021
  2. ZYPREXA [Suspect]
     Indication: ILL-DEFINED DISORDER
     Dosage: 10 MG, ORAL
     Route: 048
     Dates: start: 20051021, end: 20051021

REACTIONS (2)
  - BRADYCARDIA [None]
  - HYPOTENSION [None]
